FAERS Safety Report 25078290 (Version 1)
Quarter: 2025Q1

REPORT INFORMATION
  Report Type: Spontaneous
  Country: IE (occurrence: None)
  Receive Date: 20250313
  Receipt Date: 20250313
  Transmission Date: 20250409
  Serious: Yes (Other)
  Sender: FDA-CTU
  Company Number: None

PATIENT
  Age: 31 Year
  Sex: Male
  Weight: 81 kg

DRUGS (4)
  1. INVEGA TRINZA [Suspect]
     Active Substance: PALIPERIDONE PALMITATE
     Indication: Schizophrenia
     Route: 058
     Dates: start: 20200202, end: 20241017
  2. INVEGA SUSTENNA [Suspect]
     Active Substance: PALIPERIDONE PALMITATE
  3. INVEGA [Concomitant]
     Active Substance: PALIPERIDONE
  4. VITAMINS [Concomitant]
     Active Substance: VITAMINS

REACTIONS (9)
  - Tremor [None]
  - Restless legs syndrome [None]
  - Dyskinesia [None]
  - Libido decreased [None]
  - Blood prolactin increased [None]
  - Ejaculation disorder [None]
  - Thirst [None]
  - Vomiting [None]
  - Disturbance in social behaviour [None]

NARRATIVE: CASE EVENT DATE: 20200506
